FAERS Safety Report 23974955 (Version 1)
Quarter: 2024Q2

REPORT INFORMATION
  Report Type: Spontaneous
  Country: US (occurrence: US)
  Receive Date: 20240614
  Receipt Date: 20240614
  Transmission Date: 20240716
  Serious: Yes (Hospitalization, Disabling, Other)
  Sender: FDA-Public Use
  Company Number: US-AMGEN-USASP2024108225

PATIENT
  Age: 64 Year
  Sex: Female

DRUGS (3)
  1. DUEXIS [Suspect]
     Active Substance: FAMOTIDINE\IBUPROFEN
     Indication: Pain
     Dosage: UNK
     Route: 048
     Dates: start: 2017
  2. DUEXIS [Suspect]
     Active Substance: FAMOTIDINE\IBUPROFEN
     Dosage: UNK, BID, (800 MG-26.6 MG)
     Route: 048
     Dates: start: 2020, end: 2022
  3. IBUPROFEN AND FAMOTIDINE [Suspect]
     Active Substance: FAMOTIDINE\IBUPROFEN
     Indication: Product used for unknown indication
     Dosage: 2.26 MILLIGRAM
     Route: 065

REACTIONS (7)
  - Radiculopathy [Not Recovered/Not Resolved]
  - Colitis [Not Recovered/Not Resolved]
  - Intentional product misuse [Unknown]
  - Expired product administered [Unknown]
  - Procedural pain [Not Recovered/Not Resolved]
  - Sleep disorder [Not Recovered/Not Resolved]
  - Urinary tract infection [Not Recovered/Not Resolved]

NARRATIVE: CASE EVENT DATE: 20240501
